FAERS Safety Report 5801753-8 (Version None)
Quarter: 2008Q3

REPORT INFORMATION
  Report Type: 
  Country: None (occurrence: None)
  Receive Date: 20080703
  Receipt Date: 20080703
  Transmission Date: 20090109
  Serious: Yes (Hospitalization)
  Sender: FDA-Public Use
  Company Number: None

PATIENT
  Age: 64 Year
  Sex: Male
  Weight: 122.47 kg

DRUGS (1)
  1. SIMVASTATIN [Suspect]
     Indication: HYPERLIPIDAEMIA
     Dosage: 80 MG HS PO
     Route: 048
     Dates: start: 20080118, end: 20080521

REACTIONS (11)
  - ARTHRALGIA [None]
  - BLOOD CREATININE INCREASED [None]
  - BLOOD UREA INCREASED [None]
  - ELECTROMECHANICAL DISSOCIATION [None]
  - FALL [None]
  - FLUID OVERLOAD [None]
  - MYALGIA [None]
  - PAIN [None]
  - SPINAL DISORDER [None]
  - TENDERNESS [None]
  - URINARY TRACT INFECTION [None]
